APPROVED DRUG PRODUCT: IPRATROPIUM BROMIDE
Active Ingredient: IPRATROPIUM BROMIDE
Strength: 0.042MG/SPRAY
Dosage Form/Route: SPRAY, METERED;NASAL
Application: A215105 | Product #001 | TE Code: AB
Applicant: AMNEAL PHARMACEUTICALS LLC
Approved: Aug 16, 2022 | RLD: No | RS: No | Type: RX